FAERS Safety Report 9609616 (Version 1)
Quarter: 2013Q4

REPORT INFORMATION
  Report Type: Spontaneous
  Country: US (occurrence: US)
  Receive Date: 20131009
  Receipt Date: 20131009
  Transmission Date: 20140711
  Serious: Yes (Other)
  Sender: FDA-Public Use
  Company Number: US-PFIZER INC-2013284880

PATIENT
  Age: 82 Year
  Sex: Male
  Weight: 76.19 kg

DRUGS (5)
  1. GLUCOTROL XL [Suspect]
     Indication: DIABETES MELLITUS
     Dosage: 10 MG, 2X/DAY
  2. GLUCOTROL XL [Suspect]
     Dosage: 10 MG, 1X/DAY
  3. GLUCOTROL XL [Suspect]
     Dosage: UNK
  4. GLUCOTROL [Suspect]
     Indication: DIABETES MELLITUS
  5. NEXIUM [Concomitant]
     Indication: GASTRIC DISORDER
     Dosage: 40 MG, 2X/DAY
     Dates: start: 2008

REACTIONS (2)
  - Neoplasm malignant [Unknown]
  - Drug dispensing error [Unknown]
